FAERS Safety Report 25865106 (Version 1)
Quarter: 2025Q3

REPORT INFORMATION
  Report Type: Spontaneous
  Country: US (occurrence: None)
  Receive Date: 20250929
  Receipt Date: 20250929
  Transmission Date: 20251020
  Serious: Yes (Hospitalization)
  Sender: FDA-CTU
  Company Number: None

PATIENT
  Age: 62 Year
  Sex: Female

DRUGS (2)
  1. KESIMPTA [Suspect]
     Active Substance: OFATUMUMAB
     Indication: Multiple sclerosis
     Route: 058
     Dates: start: 20250417
  2. OTEZLA [Concomitant]
     Active Substance: APREMILAST

REACTIONS (3)
  - Musculoskeletal stiffness [None]
  - Decreased activity [None]
  - Musculoskeletal stiffness [None]

NARRATIVE: CASE EVENT DATE: 20250702
